FAERS Safety Report 18425713 (Version 4)
Quarter: 2020Q4

REPORT INFORMATION
  Report Type: Report from Study
  Country: IT (occurrence: IT)
  Receive Date: 20201026
  Receipt Date: 20201229
  Transmission Date: 20210114
  Serious: Yes (Hospitalization)
  Sender: FDA-Public Use
  Company Number: IT-ROCHE-2696549

PATIENT
  Age: 48 Year
  Sex: Female
  Weight: 58 kg

DRUGS (14)
  1. CARBOPLATIN. [Suspect]
     Active Substance: CARBOPLATIN
     Indication: BREAST CANCER
     Dosage: TOTAL DOSE WAS 225 MG?LAST DOSE BEFORE SAE WAS ON 09/OCT/2020?NUMBER OF CYCLES 6
     Route: 042
     Dates: start: 20200608, end: 20201009
  2. METRONIDAZOLE. [Concomitant]
     Active Substance: METRONIDAZOLE
     Dosage: 3 DAYS
     Route: 042
  3. LEVOFLOXACINE [Concomitant]
     Active Substance: LEVOFLOXACIN
     Indication: VASCULAR DEVICE INFECTION
     Dates: start: 20200904, end: 20200914
  4. AMOXICILLIN CLAVULANIC ACID [Concomitant]
     Active Substance: AMOXICILLIN\CLAVULANIC ACID
     Indication: VASCULAR DEVICE INFECTION
     Dates: start: 20200804, end: 20200807
  5. TRASTUZUMAB. [Suspect]
     Active Substance: TRASTUZUMAB
     Dosage: MAINTENANCE DOSE?LAST DOSE BEFORE SAE WAS 348 MG ON 02/OCT/2020.
     Route: 042
     Dates: start: 20200706, end: 20201009
  6. PERTUZUMAB. [Suspect]
     Active Substance: PERTUZUMAB
     Indication: BREAST CANCER
     Dosage: LAST DOSE BEFORE SAE WAS 420 MG ON 02/OCT/2020 LOADING DOSE ?NO. OF CYCLES 6
     Route: 042
     Dates: start: 20200608, end: 20200608
  7. LEVOFLOXACINE [Concomitant]
     Active Substance: LEVOFLOXACIN
     Dates: start: 20200812, end: 20200818
  8. ATEZOLIZUMAB. [Suspect]
     Active Substance: ATEZOLIZUMAB
     Indication: VASCULAR DEVICE INFECTION
  9. PERTUZUMAB. [Suspect]
     Active Substance: PERTUZUMAB
     Dosage: MAINTENANCE  DOSE?LAST DOSE BEFORE SAE WAS 420 MG ON 02/OCT/2020
     Route: 042
     Dates: end: 20201009
  10. VANCOMYCIN [Concomitant]
     Active Substance: VANCOMYCIN
     Route: 048
  11. ATEZOLIZUMAB. [Suspect]
     Active Substance: ATEZOLIZUMAB
     Indication: BREAST CANCER
     Dosage: NUMBER OF COURSES WERE 6?LAST DOSE BEFORE SAE WAS 02/OCT/2020
     Route: 041
     Dates: start: 20200608, end: 20201009
  12. TRASTUZUMAB. [Suspect]
     Active Substance: TRASTUZUMAB
     Indication: BREAST CANCER
     Dosage: NO. OF COURSES 6?LAST DOSE BEFORE SAE WAS 348 MG ON 02/OCT/2020.
     Route: 041
     Dates: start: 20200608, end: 20200608
  13. PACLITAXEL. [Suspect]
     Active Substance: PACLITAXEL
     Indication: BREAST CANCER
     Dosage: LAST DOSE 147 MG BEFORE SAE WAS 90 MG/MQ ON 09/OCT/2020?NUMBER OF COURSES 6
     Route: 042
     Dates: start: 20200608
  14. METHYLPREDNISOLONE. [Concomitant]
     Active Substance: METHYLPREDNISOLONE
     Dates: start: 20201022

REACTIONS (1)
  - Enterocolitis [Recovered/Resolved]

NARRATIVE: CASE EVENT DATE: 20201013
